FAERS Safety Report 25476037 (Version 1)
Quarter: 2025Q2

REPORT INFORMATION
  Report Type: Report from Study
  Country: US (occurrence: US)
  Receive Date: 20250625
  Receipt Date: 20250625
  Transmission Date: 20250717
  Serious: Yes (Hospitalization)
  Sender: DECIPHERA PHARMACEUTICALS
  Company Number: US-DECIPHERA PHARMACEUTICALS LLC-2025US000727

PATIENT
  Age: 82 Year
  Sex: Female

DRUGS (1)
  1. QINLOCK [Suspect]
     Active Substance: RIPRETINIB
     Indication: Product used for unknown indication
     Dates: end: 20250607

REACTIONS (5)
  - Fall [Unknown]
  - Compression fracture [Unknown]
  - Femur fracture [Unknown]
  - Cerebrovascular accident [Unknown]
  - Urinary tract infection [Unknown]

NARRATIVE: CASE EVENT DATE: 20250601
